FAERS Safety Report 9057691 (Version 1)
Quarter: 2013Q1

REPORT INFORMATION
  Report Type: Spontaneous
  Country: US (occurrence: None)
  Receive Date: 20130204
  Receipt Date: 20130204
  Transmission Date: 20140127
  Serious: No
  Sender: FDA-Public Use
  Company Number: None

PATIENT
  Age: 61 Year
  Sex: Male
  Weight: 75 kg

DRUGS (1)
  1. VARDENAFIL [Suspect]
     Route: 048
     Dates: start: 20121220, end: 20130115

REACTIONS (1)
  - No therapeutic response [None]
